FAERS Safety Report 12988545 (Version 1)
Quarter: 2016Q4

REPORT INFORMATION
  Report Type: Spontaneous
  Country: US (occurrence: US)
  Receive Date: 20161130
  Receipt Date: 20161130
  Transmission Date: 20170207
  Serious: Yes (Hospitalization)
  Sender: FDA-Public Use
  Company Number: US-ASTRAZENECA-2005UW19522

PATIENT
  Sex: Female
  Weight: 54.4 kg

DRUGS (3)
  1. PULMICORT TURBUHALER [Suspect]
     Active Substance: BUDESONIDE
     Indication: ASTHMA
     Dosage: TURBUHALER, 200 DOSE UNIT, 4 PUFFS TWO TIMES A DAY
     Route: 055
  2. PULMICORT TURBUHALER [Suspect]
     Active Substance: BUDESONIDE
     Indication: ASTHMA
     Dosage: FLEXHALER
     Route: 055
  3. BLOOD PRESSURE MEDICATION [Concomitant]
     Active Substance: UNSPECIFIED INGREDIENT

REACTIONS (4)
  - Circumstance or information capable of leading to medication error [Unknown]
  - Weight decreased [Unknown]
  - Fall [Unknown]
  - Device use issue [Unknown]
